FAERS Safety Report 6079258-1 (Version None)
Quarter: 2009Q1

REPORT INFORMATION
  Report Type: 
  Country: None (occurrence: None)
  Receive Date: 20090216
  Receipt Date: 20090206
  Transmission Date: 20090719
  Serious: Yes (Other)
  Sender: FDA-Public Use
  Company Number: PHHY2009MX04509

PATIENT
  Age: 69 Year
  Sex: Female

DRUGS (4)
  1. ACLASTA [Suspect]
     Indication: OSTEOPOROSIS
     Dosage: 5 MG/100 ML
     Dates: start: 20090201
  2. TENORETIC 100 [Concomitant]
     Indication: HYPERTENSION
     Dosage: 2 TABLET PER DAY
  3. CALTRATE [Concomitant]
     Indication: OSTEOPOROSIS
     Dosage: 1 TABLET PER DAY
  4. ADALAT [Concomitant]
     Dosage: 1 TABLET PER DAY

REACTIONS (8)
  - ANOREXIA [None]
  - BONE PAIN [None]
  - DIARRHOEA [None]
  - DIZZINESS [None]
  - FATIGUE [None]
  - SYNCOPE [None]
  - TACHYCARDIA [None]
  - VOMITING [None]
